FAERS Safety Report 16538390 (Version 1)
Quarter: 2019Q3

REPORT INFORMATION
  Report Type: Spontaneous
  Country: US (occurrence: US)
  Receive Date: 20190524
  Receipt Date: 20190524
  Transmission Date: 20191004
  Serious: Yes (Other)
  Sender: FDA-Public Use
  Company Number: None

PATIENT
  Age: 68 Year
  Sex: Female

DRUGS (1)
  1. ENOXAPARIN SY 40MG [Suspect]
     Active Substance: ENOXAPARIN

REACTIONS (2)
  - Device failure [None]
  - Device malfunction [None]

NARRATIVE: CASE EVENT DATE: 201905
